FAERS Safety Report 7564964-X (Version None)
Quarter: 2011Q2

REPORT INFORMATION
  Report Type: 
  Country: None (occurrence: None)
  Receive Date: 20110622
  Receipt Date: 20110303
  Transmission Date: 20111010
  Serious: Yes (Other)
  Sender: FDA-Public Use
  Company Number: US-MYLANLABS-2011S1004504

PATIENT
  Age: 58 Year
  Sex: Male

DRUGS (8)
  1. MIRTAZAPINE [Concomitant]
  2. CARBIDOPA + LEVODOPA [Concomitant]
     Dosage: 10MG/100MG TABLET
  3. SIMVASTATIN [Concomitant]
  4. DIVALPROEX SODIUM [Concomitant]
     Dosage: USING 3 X 250MG TABLET
  5. INDERAL [Concomitant]
  6. CLOZAPINE [Suspect]
     Route: 048
     Dates: end: 20110302
  7. HALDOL [Concomitant]
     Dosage: USING 3 X 5MG TABLET, BID = 60MG DAILY
  8. COGENTIN [Concomitant]

REACTIONS (1)
  - GRANULOCYTOPENIA [None]
